FAERS Safety Report 16300483 (Version 1)
Quarter: 2019Q2

REPORT INFORMATION
  Report Type: Spontaneous
  Country: US (occurrence: US)
  Receive Date: 20190510
  Receipt Date: 20190510
  Transmission Date: 20190711
  Serious: Yes (Other)
  Sender: FDA-Public Use
  Company Number: PHEH2019US020093

PATIENT
  Sex: Male

DRUGS (1)
  1. TASIGNA [Suspect]
     Active Substance: NILOTINIB
     Indication: CHRONIC MYELOID LEUKAEMIA
     Dosage: 01 DF, BID
     Route: 048
     Dates: start: 2010

REACTIONS (16)
  - Cerebrovascular accident [Unknown]
  - Dizziness [Unknown]
  - Arthralgia [Unknown]
  - Mitral valve incompetence [Unknown]
  - Left atrial enlargement [Unknown]
  - Transient ischaemic attack [Unknown]
  - Confusional state [Unknown]
  - Endocarditis [Unknown]
  - Renal failure [Unknown]
  - Muscle spasms [Unknown]
  - Facial paralysis [Unknown]
  - Acute kidney injury [Unknown]
  - Flank pain [Unknown]
  - Nephrolithiasis [Unknown]
  - Asthenia [Unknown]
  - Thrombocytopenia [Unknown]
